FAERS Safety Report 18220838 (Version 1)
Quarter: 2020Q3

REPORT INFORMATION
  Report Type: Spontaneous
  Country: US (occurrence: US)
  Receive Date: 20200902
  Receipt Date: 20200902
  Transmission Date: 20201103
  Serious: No
  Sender: FDA-Public Use
  Company Number: US-GILEAD-2020-0492393

PATIENT
  Sex: Male

DRUGS (2)
  1. EPCLUSA [Suspect]
     Active Substance: SOFOSBUVIR\VELPATASVIR
     Indication: CHRONIC HEPATITIS C
     Dosage: 1 DOSAGE FORM, QD
     Route: 048
     Dates: start: 20200731
  2. MILK THISTLE [CURCUMA LONGA;SILYBUM MARIANUM;TARAXACUM OFFICINALE] [Concomitant]

REACTIONS (3)
  - Nausea [Recovered/Resolved]
  - Product dose omission issue [Recovered/Resolved]
  - Fatigue [Recovered/Resolved]
